FAERS Safety Report 22021245 (Version 2)
Quarter: 2023Q1

REPORT INFORMATION
  Report Type: Spontaneous
  Country: FR (occurrence: FR)
  Receive Date: 20230222
  Receipt Date: 20230307
  Transmission Date: 20230417
  Serious: Yes (Other)
  Sender: FDA-Public Use
  Company Number: FR-002147023-NVSC2023FR034012

PATIENT

DRUGS (1)
  1. RUXOLITINIB [Suspect]
     Active Substance: RUXOLITINIB
     Indication: Product used for unknown indication
     Dosage: 10X2, QD (DAILY), (8 YEARS)
     Route: 065
     Dates: start: 201502

REACTIONS (2)
  - Acute lymphocytic leukaemia [Unknown]
  - Polycythaemia vera [Unknown]
